FAERS Safety Report 18432477 (Version 1)
Quarter: 2020Q4

REPORT INFORMATION
  Report Type: Spontaneous
  Country: IT (occurrence: IT)
  Receive Date: 20201027
  Receipt Date: 20201027
  Transmission Date: 20210114
  Serious: Yes (Hospitalization)
  Sender: FDA-Public Use
  Company Number: IT-TEVA-2020-IT-1840997

PATIENT
  Age: 64 Year
  Sex: Male
  Weight: 65 kg

DRUGS (7)
  1. UNIPRIL 2,5 MG COMPRESSE [Concomitant]
     Indication: HYPERTENSION
     Dosage: 1.25MILLIGRAM
     Route: 048
  2. TORVAST 20 MG COMPRESSE RIVESTITE CON FILM [Concomitant]
     Indication: HYPERCHOLESTEROLAEMIA
     Dosage: 1DOSAGEFORM
     Route: 048
  3. METOCAL VITAMINA D3 600 MG/400 U.I. COMPRESSE MASTICABILI [Concomitant]
     Indication: VITAMIN D DEFICIENCY
     Dosage: 1DOSAGEFORM
     Route: 048
  4. PROLIA 60 MG SOLUTION FOR INJECTION IN A PRE-FILLED SYRINGE [Concomitant]
     Indication: OSTEOPOROSIS
     Dosage: 2DOSAGEFORM
     Route: 058
     Dates: start: 20161101
  5. HYDROXYCHLOROQUINE SULFATE. [Suspect]
     Active Substance: HYDROXYCHLOROQUINE SULFATE
     Indication: SYSTEMIC LUPUS ERYTHEMATOSUS
     Route: 048
     Dates: start: 20200824, end: 20200914
  6. DIBASE 10.000 U.I./ML GOCCE ORALI, SOLUZIONE [Concomitant]
     Active Substance: CHOLECALCIFEROL
     Indication: VITAMIN D DEFICIENCY
     Dosage: 30GTT
     Route: 048
  7. LASIX [Concomitant]
     Active Substance: FUROSEMIDE
     Indication: HYPERTENSION
     Dosage: VIALS
     Route: 048

REACTIONS (1)
  - Rash erythematous [Recovering/Resolving]

NARRATIVE: CASE EVENT DATE: 20200916
